FAERS Safety Report 11494775 (Version 1)
Quarter: 2015Q3

REPORT INFORMATION
  Report Type: Spontaneous
  Country: US (occurrence: US)
  Receive Date: 20150911
  Receipt Date: 20150911
  Transmission Date: 20151125
  Serious: Yes (Life-Threatening, Hospitalization)
  Sender: FDA-Public Use
  Company Number: US-TARO PHARMACEUTICALS USA.,INC-2015SUN01926

PATIENT
  Age: 40 Year
  Sex: Male

DRUGS (5)
  1. VERAPAMIL [Suspect]
     Active Substance: VERAPAMIL HYDROCHLORIDE
     Indication: INTENTIONAL OVERDOSE
     Dosage: 3.6 G, UNK
     Route: 065
  2. CARBAMAZEPINE. [Suspect]
     Active Substance: CARBAMAZEPINE
     Indication: INTENTIONAL OVERDOSE
     Dosage: 1800 MG, UNK
     Route: 065
  3. NIFEDIPINE. [Suspect]
     Active Substance: NIFEDIPINE
     Indication: INTENTIONAL OVERDOSE
     Route: 065
  4. ETHANOL [Suspect]
     Active Substance: ALCOHOL
     Indication: INTENTIONAL OVERDOSE
     Route: 065
  5. FLUOXETINE [Suspect]
     Active Substance: FLUOXETINE\FLUOXETINE HYDROCHLORIDE
     Indication: INTENTIONAL OVERDOSE
     Route: 065

REACTIONS (4)
  - Intentional overdose [Recovered/Resolved]
  - Electrocardiogram QT prolonged [Unknown]
  - Shock [Recovered/Resolved]
  - Atrioventricular block first degree [Recovered/Resolved]
